FAERS Safety Report 14137647 (Version 2)
Quarter: 2017Q4

REPORT INFORMATION
  Report Type: Spontaneous
  Country: US (occurrence: US)
  Receive Date: 20171027
  Receipt Date: 20171122
  Transmission Date: 20180321
  Serious: Yes (Hospitalization, Other)
  Sender: FDA-Public Use
  Company Number: US-SAOL THERAPEUTICS-2017SAO01654

PATIENT
  Age: 68 Year
  Sex: Male
  Weight: 95 kg

DRUGS (2)
  1. BACLOFEN. [Suspect]
     Active Substance: BACLOFEN
     Indication: MUSCLE SPASTICITY
     Dosage: 507.5 ?G, \DAY
     Route: 037
     Dates: end: 20171023
  2. BACLOFEN (ORAL) [Suspect]
     Active Substance: BACLOFEN
     Dosage: 20 MG, 4X/DAY
     Route: 048

REACTIONS (4)
  - Malaise [Unknown]
  - Confusional state [Unknown]
  - Osteomyelitis [Unknown]
  - Pyrexia [Unknown]

NARRATIVE: CASE EVENT DATE: 20171024
